FAERS Safety Report 4644228-4 (Version None)
Quarter: 2005Q2

REPORT INFORMATION
  Report Type: 
  Country: None (occurrence: None)
  Receive Date: 20050331
  Receipt Date: 20050104
  Transmission Date: 20051028
  Serious: No
  Sender: FDA-Public Use
  Company Number: 05P-163-0285375-00

PATIENT
  Age: 76 Year
  Sex: Male

DRUGS (13)
  1. HUMIRA [Suspect]
     Indication: RHEUMATOID ARTHRITIS
     Dosage: 40 MG, 1 IN 2 WK, SUBCUTANEOUS
     Route: 058
     Dates: start: 20041019, end: 20041207
  2. RAMIPRIL [Concomitant]
  3. AVODART [Concomitant]
  4. ISOSORBIDE DINITRATE [Concomitant]
  5. ZOCOR [Concomitant]
  6. INSPRA [Concomitant]
  7. FUROSEMIDE [Concomitant]
  8. CARVEDILOL [Concomitant]
  9. DIGOXIN [Concomitant]
  10. LANSOPRAZOLE [Concomitant]
  11. PAROXETINE HYDROCHLORIDE [Concomitant]
  12. CHLORCON [Concomitant]
  13. FOLIC ACID [Concomitant]

REACTIONS (4)
  - CANDIDIASIS [None]
  - NAUSEA [None]
  - ODYNOPHAGIA [None]
  - WEIGHT DECREASED [None]
